FAERS Safety Report 16168905 (Version 1)
Quarter: 2019Q2

REPORT INFORMATION
  Report Type: Spontaneous
  Country: EG (occurrence: EG)
  Receive Date: 20190305
  Receipt Date: 20190305
  Transmission Date: 20190711
  Serious: Yes (Hospitalization)
  Sender: FDA-Public Use
  Company Number: None

PATIENT
  Age: 38 Year
  Sex: Female
  Weight: 75 kg

DRUGS (4)
  1. NOVORAPID [Concomitant]
     Active Substance: INSULIN ASPART
  2. TRITACE [Concomitant]
     Active Substance: RAMIPRIL
  3. DEPO-PROVERA [Suspect]
     Active Substance: MEDROXYPROGESTERONE ACETATE
     Indication: UTERINE LEIOMYOMA
     Dosage: ?          OTHER FREQUENCY:1 SHOT WEEKLY;?
     Route: 030
     Dates: start: 20180407, end: 20180721
  4. LANTUS [Concomitant]
     Active Substance: INSULIN GLARGINE

REACTIONS (22)
  - Vomiting [None]
  - Dizziness [None]
  - Amenorrhoea [None]
  - Arthralgia [None]
  - Incorrect dose administered [None]
  - Abdominal distension [None]
  - Skin striae [None]
  - Product prescribing issue [None]
  - Weight increased [None]
  - Fluid retention [None]
  - Somnolence [None]
  - Breast tenderness [None]
  - Asthenia [None]
  - Pelvic pain [None]
  - Seizure [None]
  - Fatigue [None]
  - Hirsutism [None]
  - Nausea [None]
  - Mood swings [None]
  - Depression [None]
  - Acne [None]
  - Back pain [None]

NARRATIVE: CASE EVENT DATE: 20180407
